FAERS Safety Report 10867064 (Version 2)
Quarter: 2015Q2

REPORT INFORMATION
  Report Type: Spontaneous
  Country: US (occurrence: US)
  Receive Date: 20150225
  Receipt Date: 20150604
  Transmission Date: 20150821
  Serious: Yes (Hospitalization)
  Sender: FDA-Public Use
  Company Number: US-BAYER-2015-028081

PATIENT
  Age: 26 Year
  Sex: Female
  Weight: 56.69 kg

DRUGS (2)
  1. MIRENA [Suspect]
     Active Substance: LEVONORGESTREL
     Indication: CONTRACEPTION
     Dosage: 20 MCG/24HR, CONT
     Route: 015
     Dates: start: 20121003, end: 20131101
  2. KETOROLAC [Concomitant]
     Active Substance: KETOROLAC\KETOROLAC TROMETHAMINE

REACTIONS (9)
  - Pain [None]
  - Emotional distress [None]
  - Back pain [None]
  - Anxiety [None]
  - Scar [None]
  - Uterine perforation [None]
  - Injury [None]
  - Ovarian disorder [None]
  - Abdominal pain [None]

NARRATIVE: CASE EVENT DATE: 201310
